FAERS Safety Report 20865052 (Version 1)
Quarter: 2022Q2

REPORT INFORMATION
  Report Type: Report from Study
  Country: US (occurrence: US)
  Receive Date: 20220524
  Receipt Date: 20220524
  Transmission Date: 20220721
  Serious: Yes (Hospitalization)
  Sender: FDA-Public Use
  Company Number: US-UCBSA-2022028318

PATIENT
  Age: 43 Year
  Sex: Male

DRUGS (1)
  1. CERTOLIZUMAB PEGOL [Suspect]
     Active Substance: CERTOLIZUMAB PEGOL
     Indication: Psoriasis
     Dosage: 400 MILLIGRAM, EV 2 WEEKS(QOW)
     Route: 058
     Dates: end: 202204

REACTIONS (3)
  - Pharyngitis [Recovering/Resolving]
  - Sepsis [Recovering/Resolving]
  - Gastrointestinal bacterial infection [Recovering/Resolving]

NARRATIVE: CASE EVENT DATE: 20220401
